FAERS Safety Report 8078908-8 (Version None)
Quarter: 2012Q1

REPORT INFORMATION
  Report Type: 
  Country: None (occurrence: None)
  Receive Date: 20120128
  Receipt Date: 20110425
  Transmission Date: 20120608
  Serious: No
  Sender: FDA-Public Use
  Company Number: US-ABBOTT-11P-163-0721567-00

PATIENT
  Sex: Female

DRUGS (6)
  1. PRILOSEC [Concomitant]
     Indication: CROHN'S DISEASE
  2. PENTASA [Concomitant]
     Indication: CROHN'S DISEASE
  3. HUMIRA [Suspect]
  4. NEOCON [Concomitant]
     Indication: CONTRACEPTION
  5. HUMIRA [Suspect]
     Indication: CROHN'S DISEASE
     Dosage: DAY 1
     Route: 058
     Dates: start: 20110415, end: 20110415
  6. ENTOCORT EC [Concomitant]
     Indication: CROHN'S DISEASE
     Dosage: TAPERING DOWN DOSE

REACTIONS (3)
  - INJECTION SITE ERYTHEMA [None]
  - INJECTION SITE PAPULE [None]
  - INJECTION SITE PAIN [None]
